FAERS Safety Report 24300388 (Version 1)
Quarter: 2024Q3

REPORT INFORMATION
  Report Type: Report from Study
  Country: US (occurrence: US)
  Receive Date: 20240909
  Receipt Date: 20240909
  Transmission Date: 20241016
  Serious: Yes (Hospitalization)
  Sender: ABBVIE
  Company Number: US-ABBVIE-5909564

PATIENT
  Sex: Female

DRUGS (1)
  1. RINVOQ [Suspect]
     Active Substance: UPADACITINIB
     Indication: Product used for unknown indication
     Route: 048
     Dates: start: 20240202

REACTIONS (7)
  - Inflammatory bowel disease [Unknown]
  - Haematochezia [Unknown]
  - Asthenia [Unknown]
  - Dizziness [Unknown]
  - Dehydration [Unknown]
  - Chest pain [Unknown]
  - Cardiac murmur [Unknown]

NARRATIVE: CASE EVENT DATE: 20240101
